FAERS Safety Report 15594552 (Version 2)
Quarter: 2018Q4

REPORT INFORMATION
  Report Type: Spontaneous
  Country: JP (occurrence: JP)
  Receive Date: 20181106
  Receipt Date: 20181120
  Transmission Date: 20190205
  Serious: Yes (Other)
  Sender: FDA-Public Use
  Company Number: JP-009507513-1802JPN002917J

PATIENT
  Age: 5 Year
  Sex: Female

DRUGS (2)
  1. OLOPATADINE HYDROCHLORIDE. [Suspect]
     Active Substance: OLOPATADINE HYDROCHLORIDE
     Indication: URTICARIA
     Dosage: 0.5 GRAM, BID
     Route: 048
     Dates: start: 20170710, end: 20170724
  2. SINGULAIR [Suspect]
     Active Substance: MONTELUKAST SODIUM
     Indication: UPPER RESPIRATORY TRACT INFLAMMATION
     Dosage: 4 MG, QD
     Route: 048
     Dates: start: 20170616, end: 20170630

REACTIONS (1)
  - Alopecia areata [Not Recovered/Not Resolved]

NARRATIVE: CASE EVENT DATE: 201707
